FAERS Safety Report 14661525 (Version 5)
Quarter: 2019Q1

REPORT INFORMATION
  Report Type: Report from Study
  Country: US (occurrence: US)
  Receive Date: 20180320
  Receipt Date: 20190124
  Transmission Date: 20190417
  Serious: Yes (Hospitalization, Other)
  Sender: FDA-Public Use
  Company Number: US-ACTELION-A-US2018-169302

PATIENT
  Age: 57 Year
  Sex: Female
  Weight: 68.27 kg

DRUGS (13)
  1. UPTRAVI [Suspect]
     Active Substance: SELEXIPAG
     Dosage: 800 MCG, BID
     Route: 048
     Dates: start: 20171212
  2. OXYGEN. [Concomitant]
     Active Substance: OXYGEN
     Dosage: UNK
     Dates: start: 2009
  3. UPTRAVI [Suspect]
     Active Substance: SELEXIPAG
     Dosage: 1000 MCG, BID
     Route: 048
  4. ADVAIR HFA [Concomitant]
     Active Substance: FLUTICASONE PROPIONATE\SALMETEROL XINAFOATE
     Dosage: UNK
     Dates: start: 20070727
  5. UPTRAVI [Suspect]
     Active Substance: SELEXIPAG
     Indication: PULMONARY ARTERIAL HYPERTENSION
     Dosage: 600 MCG, BID
     Route: 048
     Dates: start: 20171212
  6. TYVASO [Suspect]
     Active Substance: TREPROSTINIL
     Indication: PULMONARY HYPERTENSION
     Dosage: UNK
     Route: 055
     Dates: start: 20140818
  7. SPIRONOLACTONE. [Concomitant]
     Active Substance: SPIRONOLACTONE
     Dosage: UNK
     Dates: start: 20150826
  8. WARFARIN [Concomitant]
     Active Substance: WARFARIN
  9. FUROSEMIDE. [Concomitant]
     Active Substance: FUROSEMIDE
  10. POTASSIUM CHLORIDE. [Concomitant]
     Active Substance: POTASSIUM CHLORIDE
     Dosage: UNK
     Dates: start: 20171122
  11. TRACLEER [Concomitant]
     Active Substance: BOSENTAN
     Indication: PULMONARY ARTERIAL HYPERTENSION
     Dosage: UNK
     Route: 048
     Dates: start: 2002
  12. PAROXETINE. [Concomitant]
     Active Substance: PAROXETINE
     Dosage: UNK
     Dates: start: 20070727
  13. DILTIAZEM. [Concomitant]
     Active Substance: DILTIAZEM

REACTIONS (14)
  - Hypoxia [Recovered/Resolved]
  - Loss of consciousness [Recovered/Resolved]
  - Seizure [Unknown]
  - Brain natriuretic peptide increased [Unknown]
  - Ankle fracture [Unknown]
  - Head injury [Unknown]
  - Type 2 diabetes mellitus [Unknown]
  - Syncope [Recovered/Resolved]
  - Sedation [Unknown]
  - Pain in extremity [Unknown]
  - Fall [Unknown]
  - Sinus congestion [Unknown]
  - Oxygen saturation decreased [Recovered/Resolved]
  - Osteoporosis [Unknown]

NARRATIVE: CASE EVENT DATE: 201802
